FAERS Safety Report 7261670-6 (Version None)
Quarter: 2011Q1

REPORT INFORMATION
  Report Type: 
  Country: None (occurrence: None)
  Receive Date: 20110130
  Receipt Date: 20101103
  Transmission Date: 20110831
  Serious: No
  Sender: FDA-Public Use
  Company Number: US-ABBOTT-10P-163-0683048-00

PATIENT
  Sex: Male

DRUGS (2)
  1. HUMIRA [Suspect]
     Dates: start: 20100601
  2. HUMIRA [Suspect]
     Indication: PSORIASIS
     Dates: start: 20090701, end: 20091001

REACTIONS (1)
  - PSORIASIS [None]
